FAERS Safety Report 13640539 (Version 1)
Quarter: 2017Q2

REPORT INFORMATION
  Report Type: Spontaneous
  Country: US (occurrence: US)
  Receive Date: 20170611
  Receipt Date: 20170611
  Transmission Date: 20170830
  Serious: Yes (Other)
  Sender: FDA-Public Use
  Company Number: US-009507513-1706USA000684

PATIENT
  Sex: Male

DRUGS (1)
  1. ZEPATIER [Suspect]
     Active Substance: ELBASVIR\GRAZOPREVIR
     Indication: HEPATITIS C
     Dosage: TAKE 1 TABLET BY MOUTH EVERY DAY  (DAILY DOSE: 50-100 MG)
     Route: 048

REACTIONS (10)
  - Insomnia [Unknown]
  - Irritability [Unknown]
  - Dysgeusia [Unknown]
  - Glassy eyes [Unknown]
  - Somnolence [Unknown]
  - Nausea [Unknown]
  - Decreased appetite [Unknown]
  - Fatigue [Unknown]
  - Diverticulitis [Unknown]
  - Visual impairment [Unknown]
